FAERS Safety Report 6186587-X (Version None)
Quarter: 2009Q2

REPORT INFORMATION
  Report Type: 
  Country: None (occurrence: None)
  Receive Date: 20090512
  Receipt Date: 20090501
  Transmission Date: 20091009
  Serious: Yes (Hospitalization, Other)
  Sender: FDA-Public Use
  Company Number: US-SOLVAY-00209001658

PATIENT
  Age: 26837 Day
  Sex: Male
  Weight: 95.454 kg

DRUGS (1)
  1. ANDROGEL [Suspect]
     Indication: DRUG USE FOR UNKNOWN INDICATION
     Dosage: DAILY DOSE: 5 GRAM(S)
     Route: 062
     Dates: start: 20090302, end: 20090318

REACTIONS (2)
  - ATRIAL FIBRILLATION [None]
  - BRONCHITIS [None]
